FAERS Safety Report 11629546 (Version 1)
Quarter: 2015Q4

REPORT INFORMATION
  Report Type: Spontaneous
  Country: US (occurrence: US)
  Receive Date: 20151014
  Receipt Date: 20151014
  Transmission Date: 20160304
  Serious: Yes (Death, Other)
  Sender: FDA-Public Use
  Company Number: US-JNJFOC-20151001053

PATIENT

DRUGS (1)
  1. USTEKINUMAB [Suspect]
     Active Substance: USTEKINUMAB
     Indication: PSORIASIS
     Route: 058

REACTIONS (52)
  - Cardiac arrest [Fatal]
  - Pleural effusion [Unknown]
  - Diverticulitis [Unknown]
  - Schizophrenia, disorganised type [Unknown]
  - Muscle strain [Unknown]
  - Myocardial infarction [Unknown]
  - Suicide attempt [Unknown]
  - Tick-borne viral encephalitis [Unknown]
  - Nasopharyngitis [Unknown]
  - Lumbar vertebral fracture [Unknown]
  - Diabetes mellitus [Unknown]
  - Vertigo [Unknown]
  - Giant cell tumour of tendon sheath [Unknown]
  - Depression [Unknown]
  - Stab wound [Unknown]
  - Tubo-ovarian abscess [Unknown]
  - Perichondritis [Unknown]
  - Acute coronary syndrome [Unknown]
  - Prostate cancer [Unknown]
  - Basal cell carcinoma [Unknown]
  - Candida infection [Unknown]
  - Arthralgia [Unknown]
  - Acute hepatic failure [Unknown]
  - Femoral neck fracture [Unknown]
  - Joint injury [Unknown]
  - Acute kidney injury [Unknown]
  - Hypotension [Unknown]
  - Hepatorenal syndrome [Unknown]
  - Rhabdomyolysis [Unknown]
  - Omental infarction [Unknown]
  - Overdose [Unknown]
  - Erythrodermic psoriasis [Unknown]
  - Pancreatic carcinoma [Fatal]
  - Pneumothorax [Unknown]
  - Non-cardiac chest pain [Unknown]
  - Chondropathy [Unknown]
  - Upper respiratory tract infection [Unknown]
  - Cellulitis [Unknown]
  - Injection site reaction [Unknown]
  - Pulmonary embolism [Unknown]
  - Sleep apnoea syndrome [Unknown]
  - Neutropenia [Unknown]
  - Arteriosclerosis [Unknown]
  - Actinic keratosis [Unknown]
  - Upper gastrointestinal haemorrhage [Unknown]
  - Angina unstable [Unknown]
  - Hyperphosphataemia [Unknown]
  - Hernia [Unknown]
  - Suicidal ideation [Unknown]
  - Angina pectoris [Unknown]
  - Breast abscess [Unknown]
  - Headache [Unknown]
